FAERS Safety Report 18022243 (Version 2)
Quarter: 2021Q1

REPORT INFORMATION
  Report Type: Spontaneous
  Country: US (occurrence: US)
  Receive Date: 20200714
  Receipt Date: 20210217
  Transmission Date: 20210419
  Serious: Yes (Other)
  Sender: FDA-Public Use
  Company Number: US-PURDUE-USA-2020-0153172

PATIENT
  Sex: Female

DRUGS (4)
  1. HYDROCODONE BITARTRATE (SIMILAR TO IND 59,175) [Suspect]
     Active Substance: HYDROCODONE BITARTRATE
     Indication: OSTEOGENESIS IMPERFECTA
     Dosage: 10 MG, QID
     Route: 048
     Dates: start: 2015, end: 202004
  2. OXYCONTIN [Suspect]
     Active Substance: OXYCODONE HYDROCHLORIDE
     Indication: OSTEOGENESIS IMPERFECTA
     Dosage: 10 MG, TID
     Route: 048
     Dates: start: 2015, end: 202004
  3. OXYCONTIN [Suspect]
     Active Substance: OXYCODONE HYDROCHLORIDE
     Dosage: 10 MG, DAILY
     Route: 048
     Dates: start: 202004
  4. HYDROCODONE BITARTRATE (SIMILAR TO IND 59,175) [Suspect]
     Active Substance: HYDROCODONE BITARTRATE
     Dosage: 10 MG, DAILY
     Route: 048
     Dates: start: 202004

REACTIONS (11)
  - Abnormal behaviour [Unknown]
  - Staphylococcal infection [Unknown]
  - Nausea [Unknown]
  - Myalgia [Unknown]
  - Nightmare [Unknown]
  - Illness [Unknown]
  - Blood pressure increased [Unknown]
  - Post-traumatic stress disorder [Unknown]
  - Drug withdrawal syndrome [Unknown]
  - Headache [Unknown]
  - Off label use [Unknown]

NARRATIVE: CASE EVENT DATE: 2015
